FAERS Safety Report 10630518 (Version 1)
Quarter: 2014Q4

REPORT INFORMATION
  Report Type: Spontaneous
  Country: US (occurrence: US)
  Receive Date: 20141205
  Receipt Date: 20141205
  Transmission Date: 20150529
  Serious: No
  Sender: FDA-Public Use
  Company Number: US-BRISTOL-MYERS SQUIBB COMPANY-20443180

PATIENT
  Age: 69 Year
  Sex: Female
  Weight: 83.44 kg

DRUGS (21)
  1. TRADJENTA [Concomitant]
     Active Substance: LINAGLIPTIN
  2. CLONAZEPAM. [Concomitant]
     Active Substance: CLONAZEPAM
  3. AVALIDE [Concomitant]
     Active Substance: HYDROCHLOROTHIAZIDE\IRBESARTAN
  4. SIMVASTIN [Concomitant]
     Active Substance: SIMVASTATIN
  5. TIZANIDINE (TIZANIDINE) [Concomitant]
     Active Substance: TIZANIDINE
  6. KRILL OIL [Concomitant]
     Active Substance: DIETARY SUPPLEMENT
     Dosage: 1DF:3 OVER THE COUNTER
  7. CRANBERRY. [Concomitant]
     Active Substance: CRANBERRY
  8. LEVOTHYROXINE [Concomitant]
     Active Substance: LEVOTHYROXINE
  9. VITAMIN D [Concomitant]
     Active Substance: CHOLECALCIFEROL
  10. SYMLIN [Suspect]
     Active Substance: PRAMLINTIDE ACETATE
     Indication: TYPE 2 DIABETES MELLITUS
     Dosage: BEFORE A MEAL THAT IS 250CALORIES OR 30GRMS OF CARBOY?SOLUTION FOR INJ IN PRE-FILLED PEN
     Route: 058
     Dates: start: 201402
  11. NOVOLOG [Concomitant]
     Active Substance: INSULIN ASPART
  12. LOPRESSOR [Concomitant]
     Active Substance: METOPROLOL TARTRATE
  13. MELATONIN [Concomitant]
     Active Substance: MELATONIN
  14. MAGNESIUM OXIDE. [Concomitant]
     Active Substance: MAGNESIUM OXIDE
  15. ELAVIL [Concomitant]
     Active Substance: AMITRIPTYLINE HYDROCHLORIDE
  16. MULTIVITAMINS + IRON [Concomitant]
  17. DEXLANSOPRAZOLE [Concomitant]
     Active Substance: DEXLANSOPRAZOLE
  18. LANTUS [Concomitant]
     Active Substance: INSULIN GLARGINE
  19. CYMBALTA [Concomitant]
     Active Substance: DULOXETINE HYDROCHLORIDE
  20. TERAZOSIN [Concomitant]
     Active Substance: TERAZOSIN\TERAZOSIN HYDROCHLORIDE
  21. LORATADINE. [Concomitant]
     Active Substance: LORATADINE

REACTIONS (3)
  - Diarrhoea [Recovered/Resolved]
  - Decreased appetite [Unknown]
  - Abdominal pain upper [Unknown]

NARRATIVE: CASE EVENT DATE: 2014
